FAERS Safety Report 25003520 (Version 1)
Quarter: 2025Q1

REPORT INFORMATION
  Report Type: Spontaneous
  Country: CA (occurrence: None)
  Receive Date: 20250224
  Receipt Date: 20250224
  Transmission Date: 20250409
  Serious: Yes (Hospitalization)
  Sender: ORION
  Company Number: CA-PFIZER INC-202500038059

PATIENT
  Age: 65 Year
  Sex: Male

DRUGS (5)
  1. METHOTREXATE [Suspect]
     Active Substance: METHOTREXATE
     Indication: Rheumatoid arthritis
     Dates: start: 2024, end: 2025
  2. ABRILADA [Concomitant]
     Active Substance: ADALIMUMAB-AFZB
     Indication: Rheumatoid arthritis
     Dates: start: 20241204
  3. ABRILADA [Concomitant]
     Active Substance: ADALIMUMAB-AFZB
     Dates: start: 202502
  4. PREDNISONE [Concomitant]
     Active Substance: PREDNISONE
     Dates: start: 202412
  5. SULFASALAZINE [Concomitant]
     Active Substance: SULFASALAZINE
     Dates: start: 202502

REACTIONS (1)
  - Rheumatoid arthritis [Unknown]

NARRATIVE: CASE EVENT DATE: 20240101
